FAERS Safety Report 4584189-X (Version None)
Quarter: 2005Q1

REPORT INFORMATION
  Report Type: 
  Country: None (occurrence: None)
  Receive Date: 20050125
  Receipt Date: 20041028
  Transmission Date: 20050727
  Serious: No
  Sender: FDA-Public Use
  Company Number: USA041082610

PATIENT
  Age: 67 Year
  Sex: Female

DRUGS (9)
  1. FORTEO [Suspect]
     Dates: start: 20040101
  2. LEVOXYL [Concomitant]
  3. ACIPHEX [Concomitant]
  4. HYDROCHLOROTHIAZIDE [Concomitant]
  5. QUININE SULFATE [Concomitant]
  6. AMBIEN [Concomitant]
  7. MULTI-VITAMIN [Concomitant]
  8. CALTRATE PLUS [Concomitant]
  9. ASPIRIN [Concomitant]

REACTIONS (1)
  - SKIN REACTION [None]
